FAERS Safety Report 6545031-0 (Version None)
Quarter: 2010Q1

REPORT INFORMATION
  Report Type: 
  Country: None (occurrence: None)
  Receive Date: 20100121
  Receipt Date: 20100119
  Transmission Date: 20100710
  Serious: Yes (Other)
  Sender: FDA-Public Use
  Company Number: B0593678A

PATIENT
  Sex: Female

DRUGS (4)
  1. REQUIP XL [Suspect]
     Indication: PARKINSON'S DISEASE
     Dosage: 16MG PER DAY
     Route: 065
     Dates: start: 20080101
  2. SINEMET CR [Concomitant]
     Dosage: 5TAB PER DAY
  3. SELEGILINE HCL [Concomitant]
     Dosage: 10MG PER DAY
  4. BENDROFLUAZIDE [Concomitant]
     Indication: FLUID RETENTION
     Dosage: 2.5MG PER DAY
     Dates: start: 20091201

REACTIONS (3)
  - OEDEMA PERIPHERAL [None]
  - PARKINSON'S DISEASE [None]
  - TENDERNESS [None]
